FAERS Safety Report 6810267-8 (Version None)
Quarter: 2010Q2

REPORT INFORMATION
  Report Type: 
  Country: None (occurrence: None)
  Receive Date: 20100630
  Receipt Date: 20100622
  Transmission Date: 20101027
  Serious: Yes (Other)
  Sender: FDA-Public Use
  Company Number: JP-BRISTOL-MYERS SQUIBB COMPANY-14890248

PATIENT
  Age: 36 Year
  Sex: Female

DRUGS (4)
  1. ABILIFY [Suspect]
     Indication: SCHIZOPHRENIA
     Dosage: INTERRUPTED ON 22MAY10;9MG FROM UNK-17MAY10;
     Route: 048
     Dates: start: 20091105
  2. ABILIFY [Suspect]
     Indication: HALLUCINATION, AUDITORY
     Dosage: INTERRUPTED ON 22MAY10;9MG FROM UNK-17MAY10;
     Route: 048
     Dates: start: 20091105
  3. MYSLEE [Concomitant]
     Dosage: MYSLEE TABS
     Dates: start: 20091105
  4. LENDORMIN [Concomitant]
     Dosage: TABS
     Dates: end: 20100517

REACTIONS (3)
  - CAESAREAN SECTION [None]
  - NORMAL NEWBORN [None]
  - PREGNANCY [None]
